FAERS Safety Report 7575680-2 (Version None)
Quarter: 2011Q2

REPORT INFORMATION
  Report Type: 
  Country: None (occurrence: None)
  Receive Date: 20110628
  Receipt Date: 20110617
  Transmission Date: 20111010
  Serious: Yes (Hospitalization)
  Sender: FDA-Public Use
  Company Number: US-BIOGENIDEC-2011BI018218

PATIENT
  Age: 36 Year
  Sex: Female

DRUGS (4)
  1. TYSABRI [Suspect]
     Route: 042
     Dates: start: 20080505, end: 20080630
  2. TYSABRI [Suspect]
     Route: 042
     Dates: start: 20110601
  3. TYSABRI [Suspect]
     Indication: MULTIPLE SCLEROSIS
     Route: 042
     Dates: start: 20091104, end: 20110211
  4. CYMBALTA [Concomitant]
     Indication: RESTLESS LEGS SYNDROME

REACTIONS (4)
  - HEADACHE [None]
  - CONCUSSION [None]
  - LOSS OF CONTROL OF LEGS [None]
  - FALL [None]
